FAERS Safety Report 11343558 (Version 2)
Quarter: 2015Q3

REPORT INFORMATION
  Report Type: Spontaneous
  Country: US (occurrence: US)
  Receive Date: 20150806
  Receipt Date: 20150813
  Transmission Date: 20151125
  Serious: No
  Sender: FDA-Public Use
  Company Number: US-009507513-1508USA002000

PATIENT
  Sex: Female

DRUGS (1)
  1. NEXPLANON [Suspect]
     Active Substance: ETONOGESTREL
     Indication: CONTRACEPTION
     Dosage: 68 MG/ ONE ROD PER 3 YEAR
     Route: 059
     Dates: start: 20140205

REACTIONS (3)
  - Menstrual disorder [Unknown]
  - Device breakage [Recovered/Resolved]
  - Dysfunctional uterine bleeding [Unknown]
